FAERS Safety Report 11366813 (Version 1)
Quarter: 2015Q3

REPORT INFORMATION
  Report Type: Spontaneous
  Country: US (occurrence: US)
  Receive Date: 20150811
  Receipt Date: 20150811
  Transmission Date: 20151125
  Serious: No
  Sender: FDA-Public Use
  Company Number: US-ELI_LILLY_AND_COMPANY-US201107007009

PATIENT
  Age: 66 Year
  Sex: Male

DRUGS (3)
  1. ENALAPRIL MALEATE. [Concomitant]
     Active Substance: ENALAPRIL MALEATE
     Dosage: 9 MG, UNK
  2. AXIRON [Suspect]
     Active Substance: TESTOSTERONE
     Dosage: 60 MG, UNKNOWN
     Dates: start: 20110504, end: 20110704
  3. CIALIS [Concomitant]
     Active Substance: TADALAFIL
     Dosage: 10 MG, UNK

REACTIONS (2)
  - Dizziness [Recovered/Resolved]
  - Chest pain [Recovered/Resolved]
